FAERS Safety Report 5656034-2 (Version None)
Quarter: 2008Q1

REPORT INFORMATION
  Report Type: 
  Country: None (occurrence: None)
  Receive Date: 20080307
  Receipt Date: 20080226
  Transmission Date: 20080703
  Serious: Yes (Other)
  Sender: FDA-Public Use
  Company Number: US-PFIZER INC-2008019221

PATIENT
  Sex: Female
  Weight: 62.6 kg

DRUGS (6)
  1. LYRICA [Suspect]
     Indication: INTERVERTEBRAL DISC DEGENERATION
  2. LYRICA [Suspect]
     Indication: NEURALGIA
  3. VICODIN [Concomitant]
  4. NAPROSYN [Concomitant]
  5. ZANAFLEX [Concomitant]
  6. LEVOXYL [Concomitant]

REACTIONS (5)
  - EYE SWELLING [None]
  - LOCAL SWELLING [None]
  - OEDEMA PERIPHERAL [None]
  - SURGERY [None]
  - SWELLING FACE [None]
